FAERS Safety Report 6647518-9 (Version None)
Quarter: 2010Q1

REPORT INFORMATION
  Report Type: 
  Country: None (occurrence: None)
  Receive Date: 20100323
  Receipt Date: 20100319
  Transmission Date: 20100710
  Serious: Yes (Death, Hospitalization, Other)
  Sender: FDA-Public Use
  Company Number: US-MERCK-0804USA01817

PATIENT
  Age: 75 Year
  Sex: Female
  Weight: 54 kg

DRUGS (17)
  1. FOSAMAX [Suspect]
     Indication: OSTEOPOROSIS
     Route: 048
     Dates: start: 20030715, end: 20050901
  2. FOSAMAX [Suspect]
     Route: 048
     Dates: start: 20060101, end: 20060101
  3. DARVOCET-N 100 [Concomitant]
     Indication: ARTHRITIS
     Route: 065
     Dates: start: 20010201, end: 20051101
  4. METHOTREXATE [Concomitant]
     Indication: RHEUMATOID ARTHRITIS
     Route: 065
     Dates: start: 20020101, end: 20051001
  5. SIMVASTATIN [Concomitant]
     Indication: HYPERLIPIDAEMIA
     Route: 065
     Dates: start: 20011001, end: 20050301
  6. LISINOPRIL [Concomitant]
     Indication: HYPERTENSION
     Route: 065
     Dates: start: 20010101, end: 20060101
  7. LISINOPRIL [Concomitant]
     Route: 065
     Dates: start: 20010101, end: 20060101
  8. FOLIC ACID [Concomitant]
     Indication: RHEUMATOID ARTHRITIS
     Route: 065
     Dates: start: 20020201, end: 20051201
  9. PREDNISONE [Suspect]
     Indication: ULCER
     Route: 065
     Dates: start: 20010201, end: 20050401
  10. AMOXICILLIN [Concomitant]
     Indication: INFECTION
     Route: 065
     Dates: start: 20010101, end: 20051101
  11. LEVAQUIN [Concomitant]
     Indication: BACTERIAL INFECTION
     Route: 065
     Dates: start: 20030401, end: 20050601
  12. LANTUS [Concomitant]
     Indication: DIABETES MELLITUS
     Route: 065
     Dates: start: 20021201, end: 20050401
  13. ACYCLOVIR [Concomitant]
     Route: 065
     Dates: start: 20020701, end: 20051001
  14. NYSTATIN [Concomitant]
     Indication: INFECTION
     Route: 065
     Dates: start: 20030701, end: 20060201
  15. HYDROCHLOROTHIAZIDE [Concomitant]
     Indication: HYPERTENSION
     Route: 065
     Dates: start: 20020501, end: 20051201
  16. RABEPRAZOLE SODIUM [Concomitant]
     Indication: ULCER
     Route: 065
     Dates: start: 20020801, end: 20050801
  17. ACTONEL [Suspect]
     Indication: DIABETES MELLITUS
     Route: 048
     Dates: start: 20011201, end: 20020301

REACTIONS (37)
  - ABSCESS [None]
  - ACTINOMYCOSIS [None]
  - ADVERSE DRUG REACTION [None]
  - ARTHROPATHY [None]
  - ASTHMA [None]
  - BLOOD POTASSIUM INCREASED [None]
  - BONE DENSITY DECREASED [None]
  - BONE MARROW DISORDER [None]
  - BRONCHITIS [None]
  - DENTAL FISTULA [None]
  - DENTAL NECROSIS [None]
  - DIABETIC NEUROPATHY [None]
  - DIABETIC RETINOPATHY [None]
  - DIARRHOEA [None]
  - DRY EYE [None]
  - FATIGUE [None]
  - GASTROINTESTINAL DISORDER [None]
  - GINGIVAL BLEEDING [None]
  - GINGIVAL DISORDER [None]
  - HEPATITIS B [None]
  - HERPES VIRUS INFECTION [None]
  - HYPERCHOLESTEROLAEMIA [None]
  - HYPERTROPHY OF TONGUE PAPILLAE [None]
  - IMPAIRED HEALING [None]
  - INCREASED TENDENCY TO BRUISE [None]
  - INFUSION SITE HAEMATOMA [None]
  - INSOMNIA [None]
  - LARGE INTESTINE PERFORATION [None]
  - MACROCYTOSIS [None]
  - NAUSEA [None]
  - OEDEMA PERIPHERAL [None]
  - ORAL INFECTION [None]
  - OSTEOMYELITIS [None]
  - OSTEONECROSIS [None]
  - PERIODONTITIS [None]
  - TOOTH DISORDER [None]
  - WEIGHT DECREASED [None]
